FAERS Safety Report 23016088 (Version 3)
Quarter: 2024Q1

REPORT INFORMATION
  Report Type: Spontaneous
  Country: US (occurrence: US)
  Receive Date: 20231002
  Receipt Date: 20240206
  Transmission Date: 20240410
  Serious: Yes (Hospitalization, Other)
  Sender: FDA-Public Use
  Company Number: US-Calliditas-2023CAL01275

PATIENT
  Age: 64 Year
  Sex: Female
  Weight: 82.1 kg

DRUGS (1)
  1. TARPEYO [Suspect]
     Active Substance: BUDESONIDE
     Indication: IgA nephropathy
     Dosage: 16 MG (4 MG CAPSULES) ONCE DAILY
     Route: 048
     Dates: start: 20230321

REACTIONS (6)
  - Product dose omission issue [Unknown]
  - Rhinitis allergic [Unknown]
  - Hospitalisation [Unknown]
  - Somnolence [Unknown]
  - End stage renal disease [Unknown]
  - Dialysis [Unknown]
